FAERS Safety Report 10283431 (Version 1)
Quarter: 2014Q3

REPORT INFORMATION
  Report Type: Spontaneous
  Country: IT (occurrence: IT)
  Receive Date: 20140708
  Receipt Date: 20140708
  Transmission Date: 20150326
  Serious: Yes (Hospitalization)
  Sender: FDA-Public Use
  Company Number: IT-ROCHE-1430110

PATIENT
  Age: 71 Year
  Sex: Male

DRUGS (2)
  1. ROCEFIN [Suspect]
     Active Substance: CEFTRIAXONE SODIUM
     Indication: ENDOCARDITIS BACTERIAL
     Dosage: 1GR/3,5 ML
     Route: 030
     Dates: start: 20140608, end: 20140614
  2. GENTAMICIN [Suspect]
     Active Substance: GENTAMICIN
     Indication: ENDOCARDITIS BACTERIAL
     Route: 048
     Dates: start: 20140608, end: 20140614

REACTIONS (4)
  - Vomiting [Unknown]
  - Chest pain [Unknown]
  - Diarrhoea [Unknown]
  - Pancreatitis acute [Unknown]

NARRATIVE: CASE EVENT DATE: 20140614
